FAERS Safety Report 6974461-8 (Version None)
Quarter: 2010Q3

REPORT INFORMATION
  Report Type: 
  Country: None (occurrence: None)
  Receive Date: 20100824
  Receipt Date: 20100514
  Transmission Date: 20110219
  Serious: No
  Sender: FDA-Public Use
  Company Number: 308821

PATIENT
  Age: 80 Year

DRUGS (3)
  1. VICTOZA [Suspect]
     Indication: DIABETES MELLITUS
     Dosage: 0.6 MG, QD, SUBCUTANEOUS
     Route: 058
  2. PRANDIN [Concomitant]
  3. THIAZOLIDINEDIONES [Concomitant]

REACTIONS (1)
  - SOMNOLENCE [None]
